FAERS Safety Report 6912623-6 (Version None)
Quarter: 2010Q3

REPORT INFORMATION
  Report Type: 
  Country: None (occurrence: None)
  Receive Date: 20100806
  Receipt Date: 20080821
  Transmission Date: 20110219
  Serious: Yes (Other)
  Sender: FDA-Public Use
  Company Number: US-PFIZER INC-2008070344

PATIENT
  Sex: Male
  Weight: 62.4 kg

DRUGS (7)
  1. VFEND [Suspect]
     Indication: ASPERGILLOSIS
     Route: 048
     Dates: start: 20080816
  2. CLONAZEPAM [Concomitant]
  3. HYDROCORTISONE [Concomitant]
  4. OMEPRAZOLE [Concomitant]
  5. BACTRIM [Concomitant]
  6. TOBRAMYCIN [Concomitant]
  7. COUMADIN [Concomitant]

REACTIONS (4)
  - ALANINE AMINOTRANSFERASE INCREASED [None]
  - ASPARTATE AMINOTRANSFERASE INCREASED [None]
  - BLOOD ALKALINE PHOSPHATASE INCREASED [None]
  - BLOOD BILIRUBIN INCREASED [None]
